FAERS Safety Report 8251684-1 (Version None)
Quarter: 2012Q1

REPORT INFORMATION
  Report Type: 
  Country: None (occurrence: None)
  Receive Date: 20120321
  Receipt Date: 20120123
  Transmission Date: 20120608
  Serious: Yes (Other)
  Sender: FDA-Public Use
  Company Number: 1154630

PATIENT
  Age: 44 Year
  Sex: Female
  Weight: 98.64 kg

DRUGS (1)
  1. CIPROFLOXACIN [Suspect]
     Indication: PREOPERATIVE CARE
     Dosage: 400 MG X 1 DOSE, INTRAVENOUS DRIP
     Route: 041
     Dates: start: 20120106, end: 20120106

REACTIONS (1)
  - INFUSION SITE IRRITATION [None]
